FAERS Safety Report 19063604 (Version 1)
Quarter: 2021Q1

REPORT INFORMATION
  Report Type: Spontaneous
  Country: AT (occurrence: AT)
  Receive Date: 20210326
  Receipt Date: 20210326
  Transmission Date: 20210420
  Serious: Yes (Other)
  Sender: FDA-Public Use
  Company Number: AT-PFIZER INC-2021297524

PATIENT
  Age: 78 Year
  Sex: Male

DRUGS (1)
  1. SORTIS [Suspect]
     Active Substance: ATORVASTATIN
     Indication: CEREBROVASCULAR ACCIDENT
     Dosage: 40 MG, 1X/DAY (0?0?1?0)
     Dates: start: 20210103, end: 20210122

REACTIONS (5)
  - Epistaxis [Recovered/Resolved]
  - Erectile dysfunction [Recovered/Resolved]
  - Nuchal rigidity [Recovered/Resolved]
  - Tinnitus [Recovered/Resolved]
  - Headache [Recovered/Resolved]

NARRATIVE: CASE EVENT DATE: 20210122
